FAERS Safety Report 5512450-0 (Version None)
Quarter: 2007Q4

REPORT INFORMATION
  Report Type: 
  Country: None (occurrence: None)
  Receive Date: 20071112
  Receipt Date: 20070201
  Transmission Date: 20080405
  Serious: No
  Sender: FDA-Public Use
  Company Number: A0635688A

PATIENT
  Age: 71 Year
  Sex: Female

DRUGS (4)
  1. AVANDAMET [Suspect]
     Route: 048
     Dates: start: 20061106
  2. GLIMEPIRIDE [Concomitant]
  3. TRICOR [Concomitant]
  4. SIMVASTATIN [Concomitant]

REACTIONS (1)
  - SENSORY DISTURBANCE [None]
